FAERS Safety Report 15540951 (Version 1)
Quarter: 2018Q4

REPORT INFORMATION
  Report Type: Spontaneous
  Country: DK (occurrence: DK)
  Receive Date: 20181023
  Receipt Date: 20181023
  Transmission Date: 20190205
  Serious: Yes (Death, Hospitalization, Other)
  Sender: FDA-Public Use
  Company Number: PHHY2018DK134326

PATIENT
  Age: 14 Year
  Sex: Female

DRUGS (1)
  1. FLUOXETINE HYDROCHLORIDE. [Suspect]
     Active Substance: FLUOXETINE HYDROCHLORIDE
     Indication: PRODUCT USED FOR UNKNOWN INDICATION
     Dosage: UNK
     Route: 065

REACTIONS (29)
  - Toxicity to various agents [Fatal]
  - Seizure [Unknown]
  - Obsessive-compulsive symptom [Unknown]
  - Vomiting [Unknown]
  - Depressed mood [Unknown]
  - Personality change [Unknown]
  - Mental disorder [Unknown]
  - Tourette^s disorder [Unknown]
  - Dyspnoea [Unknown]
  - Asthenia [Unknown]
  - Sluggishness [Unknown]
  - Hyperhidrosis [Unknown]
  - Contusion [Unknown]
  - Insomnia [Unknown]
  - Emotional distress [Unknown]
  - Speech disorder [Unknown]
  - Crying [Unknown]
  - Sedation [Unknown]
  - Somnolence [Unknown]
  - Intentional self-injury [Unknown]
  - Diarrhoea [Unknown]
  - Cachexia [Unknown]
  - Fall [Unknown]
  - Balance disorder [Unknown]
  - Tremor [Unknown]
  - Wound haemorrhage [Unknown]
  - Disorientation [Unknown]
  - Restlessness [Unknown]
  - Feeling abnormal [Unknown]

NARRATIVE: CASE EVENT DATE: 20180316
